FAERS Safety Report 5805308-0 (Version None)
Quarter: 2008Q3

REPORT INFORMATION
  Report Type: 
  Country: None (occurrence: None)
  Receive Date: 20080708
  Receipt Date: 20080630
  Transmission Date: 20090109
  Serious: Yes (Death, Hospitalization)
  Sender: FDA-Public Use
  Company Number: 163-21880-08020953

PATIENT
  Age: 87 Year
  Sex: Male
  Weight: 78.0187 kg

DRUGS (12)
  1. REVLIMID [Suspect]
     Indication: PROSTATE CANCER
     Dosage: 25 MG, QD X 21 DAYS, ORAL
     Route: 048
     Dates: start: 20080201, end: 20080212
  2. KETOCONAZOLE [Suspect]
     Indication: PROSTATE CANCER
     Dosage: 400 MG, TID, ORAL
     Route: 048
     Dates: start: 20080201, end: 20080227
  3. CORTEF [Concomitant]
  4. IBUPROFEN [Concomitant]
  5. CARDURA [Concomitant]
  6. CARBOXYMETHYLCELLULOSE SODIUM (CARMELLOSE SODIUM) [Concomitant]
  7. LEVOBUNOLOL (LEVOBUNOLOL) [Concomitant]
  8. BACITRACIN [Concomitant]
  9. HYDROCORTISONE [Concomitant]
  10. ASPIRIN [Concomitant]
  11. ACETAMINOPHEN [Concomitant]
  12. LOVENOX [Concomitant]

REACTIONS (14)
  - ATRIAL FIBRILLATION [None]
  - BUNDLE BRANCH BLOCK RIGHT [None]
  - CONSTIPATION [None]
  - DEEP VEIN THROMBOSIS [None]
  - DYSPNOEA EXERTIONAL [None]
  - EJECTION FRACTION DECREASED [None]
  - LEFT ATRIAL DILATATION [None]
  - MITRAL VALVE INCOMPETENCE [None]
  - NASOPHARYNGITIS [None]
  - NAUSEA [None]
  - PULMONARY EMBOLISM [None]
  - PULMONARY HYPERTENSION [None]
  - RIGHT ATRIAL DILATATION [None]
  - TRICUSPID VALVE INCOMPETENCE [None]
